FAERS Safety Report 6851309-3 (Version None)
Quarter: 2010Q3

REPORT INFORMATION
  Report Type: 
  Country: None (occurrence: None)
  Receive Date: 20100717
  Receipt Date: 20080115
  Transmission Date: 20110219
  Serious: No
  Sender: FDA-Public Use
  Company Number: US-PFIZER INC-2008004839

PATIENT
  Sex: Female
  Weight: 54.4 kg

DRUGS (6)
  1. CHANTIX [Suspect]
     Indication: SMOKING CESSATION THERAPY
     Dates: start: 20080115
  2. PLAVIX [Concomitant]
  3. SYNTHROID [Concomitant]
  4. COREG [Concomitant]
  5. CRESTOR [Concomitant]
  6. DEPAKOTE [Concomitant]

REACTIONS (2)
  - DIZZINESS [None]
  - HEADACHE [None]
